FAERS Safety Report 23717601 (Version 1)
Quarter: 2024Q2

REPORT INFORMATION
  Report Type: Spontaneous
  Country: US (occurrence: US)
  Receive Date: 20240408
  Receipt Date: 20240408
  Transmission Date: 20240716
  Serious: Yes (Hospitalization)
  Sender: FDA-Public Use
  Company Number: US-Accord-417004

PATIENT
  Sex: Male
  Weight: 2.76 kg

DRUGS (4)
  1. CISPLATIN [Suspect]
     Active Substance: CISPLATIN
     Indication: Rectal cancer metastatic
     Dosage: ON DAY 1 FOLLOWED BY A 4- WEEK INTERVAL 1 CYCLE AT 27 WEEKS AND 2 CYCLE AT 31 WEEKS OF GESTATION
     Route: 064
  2. FLUOROURACIL [Suspect]
     Active Substance: FLUOROURACIL
     Indication: Rectal cancer metastatic
     Dosage: DAYS 1-4 , 1 CYCLE AT 27 WEEKS AND 2 CYCLE AT 31 WEEKS OF GESTATION
     Route: 064
  3. CISPLATIN [Suspect]
     Active Substance: CISPLATIN
     Indication: Rectal cancer
     Dosage: ON DAY 1 FOLLOWED BY A 4- WEEK INTERVAL 1 CYCLE AT 27 WEEKS AND 2 CYCLE AT 31 WEEKS OF GESTATION
     Route: 064
  4. FLUOROURACIL [Suspect]
     Active Substance: FLUOROURACIL
     Indication: Rectal cancer
     Dosage: DAYS 1-4 , 1 CYCLE AT 27 WEEKS AND 2 CYCLE AT 31 WEEKS OF GESTATION
     Route: 064

REACTIONS (4)
  - Foetal exposure during pregnancy [Unknown]
  - Off label use [Unknown]
  - Dyspnoea [Recovered/Resolved]
  - Poor feeding infant [Recovered/Resolved]
